FAERS Safety Report 5284424-9 (Version None)
Quarter: 2007Q1

REPORT INFORMATION
  Report Type: 
  Country: None (occurrence: None)
  Receive Date: 20070327
  Receipt Date: 20070316
  Transmission Date: 20070707
  Serious: Yes (Disabling)
  Sender: FDA-Public Use
  Company Number: 2007P1000146

PATIENT
  Age: 30 Year
  Sex: Male

DRUGS (3)
  1. BUSULFAN (BUSULFAN) [Suspect]
     Indication: STEM CELL TRANSPLANT
     Dosage: IV
     Route: 042
  2. CYCLOPHOSPHAMIDE [Suspect]
     Indication: STEM CELL TRANSPLANT
  3. METHOTREXATE [Suspect]
     Indication: STEM CELL TRANSPLANT

REACTIONS (3)
  - CEREBELLAR ATAXIA [None]
  - GENERAL PHYSICAL CONDITION ABNORMAL [None]
  - HERPES ZOSTER [None]
